FAERS Safety Report 6628297-8 (Version None)
Quarter: 2010Q1

REPORT INFORMATION
  Report Type: 
  Country: None (occurrence: None)
  Receive Date: 20100311
  Receipt Date: 20100309
  Transmission Date: 20100710
  Serious: Yes (Hospitalization)
  Sender: FDA-Public Use
  Company Number: US-ROCHE-599325

PATIENT
  Sex: Female
  Weight: 72 kg

DRUGS (3)
  1. BEVACIZUMAB [Suspect]
     Indication: GASTRIC CANCER
     Route: 042
     Dates: start: 20081103
  2. CAPECITABINE [Suspect]
     Indication: GASTRIC CANCER
     Dosage: DOSAGE FORM: ORAL
     Route: 048
     Dates: start: 20081103
  3. CISPLATIN [Suspect]
     Indication: GASTRIC CANCER
     Dosage: ROUTE: IVPB, DOSAGE FORM: IV
     Route: 042
     Dates: start: 20081103

REACTIONS (5)
  - BLOOD CREATININE INCREASED [None]
  - DEHYDRATION [None]
  - HAEMOGLOBIN DECREASED [None]
  - RENAL FAILURE [None]
  - VOMITING [None]
